FAERS Safety Report 10170232 (Version 1)
Quarter: 2014Q2

REPORT INFORMATION
  Report Type: Report from Study
  Country: US (occurrence: US)
  Receive Date: 20140513
  Receipt Date: 20140513
  Transmission Date: 20141212
  Serious: Yes (Other)
  Sender: FDA-Public Use
  Company Number: US-MYLANLABS-2014S1010625

PATIENT
  Age: 30 Year
  Sex: Male

DRUGS (1)
  1. AMNESTEEM CAPSULES [Suspect]
     Indication: ACNE
     Route: 048
     Dates: start: 20140218, end: 20140401

REACTIONS (1)
  - Exposure via body fluid [Not Recovered/Not Resolved]
